FAERS Safety Report 6699281-3 (Version None)
Quarter: 2010Q2

REPORT INFORMATION
  Report Type: 
  Country: None (occurrence: None)
  Receive Date: 20100427
  Receipt Date: 20100422
  Transmission Date: 20101027
  Serious: Yes (Death)
  Sender: FDA-Public Use
  Company Number: PHHY2010US26310

PATIENT
  Sex: Male

DRUGS (1)
  1. NEORAL [Suspect]
     Dosage: 100 MG, UNK

REACTIONS (1)
  - DEATH [None]
